FAERS Safety Report 24303746 (Version 1)
Quarter: 2024Q3

REPORT INFORMATION
  Report Type: Spontaneous
  Country: US (occurrence: US)
  Receive Date: 20240910
  Receipt Date: 20240910
  Transmission Date: 20241016
  Serious: Yes (Hospitalization)
  Sender: AMGEN
  Company Number: US-AMGEN-USASP2024177164

PATIENT

DRUGS (1)
  1. PREDNISONE [Suspect]
     Active Substance: PREDNISONE
     Indication: Immunosuppression
     Dosage: UNK
     Route: 065

REACTIONS (8)
  - Acute kidney injury [Unknown]
  - Gastrointestinal disorder [Unknown]
  - Infection [Unknown]
  - Post procedural complication [Unknown]
  - Hyperkalaemia [Unknown]
  - Hypotension [Unknown]
  - Hypertension [Unknown]
  - Adverse event [Unknown]
